FAERS Safety Report 9434896 (Version 1)
Quarter: 2013Q3

REPORT INFORMATION
  Report Type: Spontaneous
  Country: US (occurrence: US)
  Receive Date: 20130801
  Receipt Date: 20130801
  Transmission Date: 20140515
  Serious: Yes (Other)
  Sender: FDA-Public Use
  Company Number: PHEH2013US015767

PATIENT
  Sex: Female

DRUGS (1)
  1. FEMARA [Suspect]
     Indication: NEOPLASM MALIGNANT
     Dosage: UNK

REACTIONS (7)
  - Fall [Unknown]
  - Osteoporosis [Unknown]
  - Osteopenia [Unknown]
  - Wrist fracture [Unknown]
  - Bone disorder [Unknown]
  - Asthenia [Unknown]
  - Malaise [Unknown]
